FAERS Safety Report 16024311 (Version 2)
Quarter: 2019Q1

REPORT INFORMATION
  Report Type: Spontaneous
  Country: JP (occurrence: JP)
  Receive Date: 20190301
  Receipt Date: 20190308
  Transmission Date: 20190418
  Serious: Yes (Hospitalization, Other)
  Sender: FDA-Public Use
  Company Number: JP-JNJFOC-20190236531

PATIENT
  Age: 8 Decade
  Sex: Male

DRUGS (3)
  1. TRAMADOL HYDROCHLORIDE AND ACETAMINOPHEN [Suspect]
     Active Substance: ACETAMINOPHEN\TRAMADOL HYDROCHLORIDE
     Indication: PAIN
     Route: 048
     Dates: start: 201811
  2. SIMPONI [Suspect]
     Active Substance: GOLIMUMAB
     Indication: RHEUMATOID ARTHRITIS
     Route: 058
     Dates: start: 20190204, end: 20190204
  3. CELECOX [Concomitant]
     Active Substance: CELECOXIB
     Indication: PAIN
     Route: 048

REACTIONS (3)
  - Cervical vertebral fracture [Unknown]
  - Myocardial infarction [Unknown]
  - Fall [Unknown]

NARRATIVE: CASE EVENT DATE: 201901
